FAERS Safety Report 25914095 (Version 3)
Quarter: 2025Q4

REPORT INFORMATION
  Report Type: Spontaneous
  Country: CA (occurrence: CA)
  Receive Date: 20251013
  Receipt Date: 20251209
  Transmission Date: 20260117
  Serious: Yes (Hospitalization, Other)
  Sender: PFIZER
  Company Number: CA-PFIZER INC-202500102150

PATIENT
  Age: 59 Year
  Sex: Female
  Weight: 55.5 kg

DRUGS (3)
  1. IXIFI [Suspect]
     Active Substance: INFLIXIMAB-QBTX
     Indication: Crohn^s disease
     Dosage: 300 MG, EVERY 6 WEEKS
     Route: 042
     Dates: start: 20250618
  2. IXIFI [Suspect]
     Active Substance: INFLIXIMAB-QBTX
     Dosage: 300 MG, EVERY 6 WEEKS
     Route: 042
     Dates: start: 20250730
  3. PREDNISONE [Concomitant]
     Active Substance: PREDNISONE
     Dosage: UNK

REACTIONS (9)
  - Condition aggravated [Unknown]
  - Pericarditis [Unknown]
  - Alveolar osteitis [Recovered/Resolved]
  - Oropharyngeal pain [Recovering/Resolving]
  - Pain [Unknown]
  - Oral candidiasis [Not Recovered/Not Resolved]
  - Candida infection [Unknown]
  - Oral herpes [Unknown]
  - Off label use [Unknown]

NARRATIVE: CASE EVENT DATE: 20250101
